FAERS Safety Report 19296671 (Version 1)
Quarter: 2021Q2

REPORT INFORMATION
  Report Type: Spontaneous
  Country: CN (occurrence: CN)
  Receive Date: 20210524
  Receipt Date: 20210524
  Transmission Date: 20210717
  Serious: Yes (Hospitalization, Other)
  Sender: FDA-Public Use
  Company Number: CN-009507513-2105CHN004720

PATIENT
  Age: 62 Year
  Sex: Male
  Weight: 90 kg

DRUGS (2)
  1. PEMBROLIZUMAB. [Suspect]
     Active Substance: PEMBROLIZUMAB
     Indication: LUNG ADENOCARCINOMA
     Dosage: 200MG, ONCE EVERY 3 WEEKS
     Route: 041
     Dates: start: 20180504, end: 201810
  2. PEMBROLIZUMAB. [Suspect]
     Active Substance: PEMBROLIZUMAB
     Dosage: 200MG, ONCE EVERY 3 WEEKS
     Dates: start: 201811

REACTIONS (3)
  - Tremor [Recovered/Resolved]
  - Immune-mediated myocarditis [Recovered/Resolved]
  - Immune-mediated hypothyroidism [Recovered/Resolved]

NARRATIVE: CASE EVENT DATE: 201810
